FAERS Safety Report 7574772-1 (Version None)
Quarter: 2011Q2

REPORT INFORMATION
  Report Type: 
  Country: None (occurrence: None)
  Receive Date: 20110627
  Receipt Date: 20090930
  Transmission Date: 20111010
  Serious: Yes (Hospitalization, Other)
  Sender: FDA-Public Use
  Company Number: US-BAYER-200934657NA

PATIENT
  Age: 53 Year
  Sex: Female
  Weight: 145 kg

DRUGS (15)
  1. METOPROLOL TARTRATE [Concomitant]
     Dosage: 50 MG, BID
  2. POTASSIUM CHLORIDE [Concomitant]
     Dosage: UNK
     Dates: start: 20060309
  3. INSULIN [Concomitant]
     Dosage: UNK
     Dates: start: 20060309
  4. LIPITOR [Concomitant]
  5. METFORMIN HCL [Concomitant]
     Dosage: 500 MG, BID
  6. TRASYLOL [Suspect]
     Dosage: 50 ML/HR
     Route: 042
     Dates: start: 20060309, end: 20060309
  7. LOVASTATIN [Concomitant]
     Dosage: 20 MG, BID
  8. LISINOPRIL [Concomitant]
     Dosage: 10 MG, QD
  9. FELODIPINE [Concomitant]
     Dosage: 5 MG, QD
  10. CLINDAMYCIN [Concomitant]
  11. PLAVIX [Concomitant]
     Dosage: 75 MG, QD
  12. ETOMIDATE [Concomitant]
     Dosage: UNK
     Dates: start: 20060309
  13. ACTOS [Concomitant]
     Dosage: 25 MG, QD
  14. NITROGLYCERIN [Concomitant]
     Dosage: UNK
     Dates: start: 20060309
  15. TRASYLOL [Suspect]
     Indication: CORONARY ARTERY BYPASS
     Dosage: 200 ML
     Route: 042
     Dates: start: 20060309, end: 20060309

REACTIONS (8)
  - RENAL FAILURE [None]
  - DEPRESSION [None]
  - INJURY [None]
  - UNEVALUABLE EVENT [None]
  - ANXIETY [None]
  - PAIN [None]
  - ANHEDONIA [None]
  - FEAR [None]
